FAERS Safety Report 8970916 (Version 1)
Quarter: 2012Q4

REPORT INFORMATION
  Report Type: 
  Country: GB (occurrence: GB)
  Receive Date: 20121218
  Receipt Date: 20121218
  Transmission Date: 20130627
  Serious: Yes (Hospitalization, Other)
  Sender: FDA-Public Use
  Company Number: GB-JNJFOC-20121203219

PATIENT
  Age: 43 Year
  Sex: Male

DRUGS (9)
  1. DARUNAVIR [Suspect]
     Indication: HIV INFECTION
     Route: 048
     Dates: start: 2007
  2. TENOFOVIR [Suspect]
     Indication: HIV INFECTION
     Dosage: alternate days
     Route: 065
  3. TENOFOVIR [Suspect]
     Indication: HIV INFECTION
     Route: 065
     Dates: start: 2007
  4. EMTRICITABINE [Suspect]
     Indication: HIV INFECTION
     Route: 065
     Dates: start: 2007
  5. RITONAVIR [Interacting]
     Indication: HIV INFECTION
     Route: 065
     Dates: start: 2007
  6. MARAVIROC [Suspect]
     Indication: HIV INFECTION
     Route: 065
     Dates: start: 2007
  7. RALTEGRAVIR [Suspect]
     Indication: HIV INFECTION
     Route: 065
     Dates: start: 2007
  8. PERINDOPRIL [Interacting]
     Indication: HYPERTENSION
     Dosage: low dose
     Route: 065
     Dates: start: 2008
  9. ATORVASTATIN [Interacting]
     Indication: LIPIDS INCREASED
     Route: 065
     Dates: start: 2008

REACTIONS (5)
  - Secondary hypertension [Recovered/Resolved]
  - Drug interaction [Unknown]
  - Renal impairment [Unknown]
  - Lipids increased [Unknown]
  - Migraine [Recovered/Resolved]
